FAERS Safety Report 22970549 (Version 3)
Quarter: 2023Q4

REPORT INFORMATION
  Report Type: Spontaneous
  Country: LK (occurrence: LK)
  Receive Date: 20230922
  Receipt Date: 20231010
  Transmission Date: 20240110
  Serious: Yes (Life-Threatening, Hospitalization, Other)
  Sender: FDA-Public Use
  Company Number: LK-Accord-379721

PATIENT
  Age: 16 Year
  Sex: Female
  Weight: 35 kg

DRUGS (2)
  1. AMITRIPTYLINE [Suspect]
     Active Substance: AMITRIPTYLINE
     Dosage: ABOUT TEN TABLETS 10 {DF}, 1 TOTAL
     Route: 048
  2. AMITRIPTYLINE [Suspect]
     Active Substance: AMITRIPTYLINE
     Dosage: ABOUT TEN TABLETS 10 {DF}, 1 TOTAL
     Route: 048

REACTIONS (10)
  - Intentional overdose [Recovered/Resolved]
  - Clonus [Recovered/Resolved]
  - Hyperreflexia [Recovered/Resolved]
  - Strabismus [Recovered/Resolved]
  - Loss of consciousness [Recovered/Resolved]
  - Tachycardia [Recovered/Resolved]
  - Neurological decompensation [Recovered/Resolved]
  - Acidosis [Recovered/Resolved]
  - Hypotonia [Recovered/Resolved]
  - Mydriasis [Recovered/Resolved]
